FAERS Safety Report 4294505-4 (Version None)
Quarter: 2004Q1

REPORT INFORMATION
  Report Type: 
  Country: None (occurrence: None)
  Receive Date: 20040211
  Receipt Date: 20040128
  Transmission Date: 20041129
  Serious: Yes (Death, Other)
  Sender: FDA-Public Use
  Company Number: GBS040114359

PATIENT
  Age: 73 Year
  Sex: Female
  Weight: 60 kg

DRUGS (5)
  1. OLANZAPINE [Suspect]
     Dosage: 75 MG/DAY
     Dates: start: 20031021, end: 20031201
  2. ASPIRIN [Concomitant]
  3. PAROXETINE [Concomitant]
  4. SIMVASTATIN [Concomitant]
  5. ZOPICLONE [Concomitant]

REACTIONS (3)
  - LEUKOPENIA [None]
  - LYMPHOCYTIC LEUKAEMIA [None]
  - NEUTROPENIA [None]
